FAERS Safety Report 15388434 (Version 2)
Quarter: 2018Q3

REPORT INFORMATION
  Report Type: Spontaneous
  Country: US (occurrence: US)
  Receive Date: 20180915
  Receipt Date: 20180921
  Transmission Date: 20181010
  Serious: No
  Sender: FDA-Public Use
  Company Number: US-UNITED THERAPEUTICS-UNT-2018-014628

PATIENT
  Sex: Female
  Weight: 57.6 kg

DRUGS (4)
  1. ELIQUIS [Concomitant]
     Active Substance: APIXABAN
     Indication: PRODUCT USED FOR UNKNOWN INDICATION
     Route: 065
  2. TYVASO [Suspect]
     Active Substance: TREPROSTINIL
     Indication: PULMONARY ARTERIAL HYPERTENSION
     Dosage: 18?54 MICROGRAMS, QID
     Dates: start: 20180830, end: 20180912
  3. TYVASO [Suspect]
     Active Substance: TREPROSTINIL
     Dosage: 12 ?G, QID
  4. ADEMPAS [Concomitant]
     Active Substance: RIOCIGUAT
     Indication: PRODUCT USED FOR UNKNOWN INDICATION
     Route: 065

REACTIONS (10)
  - Pain [Unknown]
  - Migraine [Unknown]
  - Drug intolerance [Unknown]
  - Pain in extremity [Unknown]
  - Productive cough [Unknown]
  - Chest pain [Unknown]
  - Feeling abnormal [Unknown]
  - Decreased appetite [Unknown]
  - Incontinence [Unknown]
  - Headache [Unknown]

NARRATIVE: CASE EVENT DATE: 2018
